FAERS Safety Report 7116748-4 (Version None)
Quarter: 2010Q4

REPORT INFORMATION
  Report Type: 
  Country: None (occurrence: None)
  Receive Date: 20101122
  Receipt Date: 20101109
  Transmission Date: 20110411
  Serious: Yes (Other)
  Sender: FDA-Public Use
  Company Number: GXKR2010GB10745

PATIENT
  Age: 75 Year
  Sex: Male
  Weight: 73.5 kg

DRUGS (7)
  1. TRAMADOL (NGX) [Suspect]
     Dosage: 100 MG, UNK
     Route: 065
     Dates: start: 20100727
  2. ORAMORPH SR [Suspect]
     Indication: PAIN
     Dosage: 10 MG, TID
     Route: 048
     Dates: start: 20100727, end: 20100727
  3. ENOXAPARIN SODIUM [Concomitant]
     Indication: ATRIAL FIBRILLATION
     Dosage: 40 MG, QD
     Route: 058
     Dates: start: 20100726, end: 20100726
  4. ENOXAPARIN SODIUM [Concomitant]
     Indication: PROPHYLAXIS
  5. METFORMIN HCL [Concomitant]
     Indication: HYPERGLYCAEMIA
     Dosage: 850 MG, BID
     Route: 048
  6. PARACETAMOL [Concomitant]
     Indication: PAIN
     Dosage: 1 G, QID
     Route: 042
     Dates: start: 20100727
  7. PARACETAMOL [Concomitant]
     Dosage: 1 G, QID
     Route: 048
     Dates: start: 20100727

REACTIONS (2)
  - CIRCULATORY COLLAPSE [None]
  - MIOSIS [None]
